FAERS Safety Report 9444618 (Version 1)
Quarter: 2013Q3

REPORT INFORMATION
  Report Type: Spontaneous
  Country: US (occurrence: US)
  Receive Date: 20130807
  Receipt Date: 20130807
  Transmission Date: 20140515
  Serious: No
  Sender: FDA-Public Use
  Company Number: US-PFIZER INC-2013226639

PATIENT
  Age: 50 Year
  Sex: Male
  Weight: 74.83 kg

DRUGS (4)
  1. VFEND [Suspect]
     Indication: ASPERGILLUS INFECTION
     Dosage: TWO TABLETS OF 200MG EACH, TWO TIMES A DAY
     Route: 048
     Dates: start: 2013
  2. VFEND [Suspect]
     Dosage: 250 MG, 2X/DAY
     Route: 048
     Dates: start: 2013
  3. HYDROCODONE [Concomitant]
     Dosage: 10/500 MG, UNK
  4. ALPRAZOLAM [Concomitant]
     Dosage: 1 MG, UNK

REACTIONS (3)
  - Oral discomfort [Not Recovered/Not Resolved]
  - Blood test abnormal [Unknown]
  - Headache [Unknown]
